FAERS Safety Report 6093002-3 (Version None)
Quarter: 2009Q1

REPORT INFORMATION
  Report Type: 
  Country: None (occurrence: None)
  Receive Date: 20090224
  Receipt Date: 20090211
  Transmission Date: 20090719
  Serious: Yes (Hospitalization)
  Sender: FDA-Public Use
  Company Number: SPV1-2009-00224

PATIENT
  Age: 14 Year
  Sex: Male

DRUGS (1)
  1. ELAPRASE [Suspect]
     Indication: MUCOPOLYSACCHARIDOSIS II
     Dosage: 3 DF, 1X/WEEK, IV DRIP
     Route: 041
     Dates: start: 20070405

REACTIONS (3)
  - DISEASE PROGRESSION [None]
  - GRAND MAL CONVULSION [None]
  - MUCOPOLYSACCHARIDOSIS II [None]
